FAERS Safety Report 9383882 (Version 1)
Quarter: 2013Q3

REPORT INFORMATION
  Report Type: Spontaneous
  Country: IE (occurrence: IE)
  Receive Date: 20130704
  Receipt Date: 20130704
  Transmission Date: 20140515
  Serious: Yes (Death)
  Sender: FDA-Public Use
  Company Number: IE-AMGEN-IRLSP2013046551

PATIENT
  Age: 77 Year
  Sex: Female

DRUGS (13)
  1. NEULASTA [Suspect]
     Indication: SMALL CELL LUNG CANCER
     Dosage: 6MG/0.6ML, POST CHEMO THREE WEEKLY
     Route: 058
     Dates: start: 20121018
  2. BISOP [Concomitant]
     Dosage: 1.25 MG, UNK
  3. BISOP [Concomitant]
     Dosage: 5 MG, UNK
  4. LIPITOR [Concomitant]
     Dosage: 20 MG, UNK
  5. NEXIUM                             /01479302/ [Concomitant]
     Dosage: 20 MG, UNK
  6. ISOMONIT [Concomitant]
     Dosage: 60 MG, UNK
  7. ZOFRAN                             /00955301/ [Concomitant]
     Dosage: 4 MGX2, UNK
  8. DOZEPT [Concomitant]
     Dosage: 10 MG, UNK
  9. ELTROXIN [Concomitant]
     Dosage: 50 MUG, UNK
  10. CARBOPLATIN [Concomitant]
     Dosage: UNK
  11. LASIX                              /00032601/ [Concomitant]
     Dosage: 40 MG, UNK
  12. RAMILO [Concomitant]
     Dosage: 5 MG, UNK
  13. NU-SEALS ASPIRIN [Concomitant]
     Dosage: 75 MG, UNK

REACTIONS (1)
  - Death [Fatal]
